FAERS Safety Report 5861806-5 (Version None)
Quarter: 2008Q3

REPORT INFORMATION
  Report Type: 
  Country: None (occurrence: None)
  Receive Date: 20080826
  Receipt Date: 20080820
  Transmission Date: 20090109
  Serious: Yes (Other)
  Sender: FDA-Public Use
  Company Number: 2008JP003503

PATIENT
  Age: 81 Year
  Sex: Female
  Weight: 40 kg

DRUGS (10)
  1. VESICARE [Suspect]
     Indication: HYPERTONIC BLADDER
     Dosage: 5 MG, UID/QD, ORAL
     Route: 048
     Dates: start: 20071211
  2. SERTRALINE HYDROCHLORIDE (SERTRALINE HYDROCHLORIDE) PER ORAL NOS [Concomitant]
  3. ARICEPT (DONEPEZIL HYDROCHLORIDE) PER ORAL NOS [Concomitant]
  4. JUVELA N (TOCOPHERYL NICOTINATE) PER ORAL NOS [Concomitant]
  5. CARNACULIN (KALLIDINOGENASE) PER ORAL NOS [Concomitant]
  6. LIPITOR (ATORVASTATIN CALCIUM) PER ORAL NOS [Concomitant]
  7. PAXIL (PAROXETINE HYDROCHLORIDE) PER ORAL NOS [Concomitant]
  8. ADALAT CR PER ORAL NOS [Concomitant]
  9. MYSLEE (ZOLPIDEM TARTRATE) PER ORAL NOS [Concomitant]
  10. DIOVAN (VALSARTAN) PER ORAL NOS [Concomitant]

REACTIONS (4)
  - BLOOD LACTATE DEHYDROGENASE INCREASED [None]
  - HYPERKALAEMIA [None]
  - HYPERLIPIDAEMIA [None]
  - MINI MENTAL STATUS EXAMINATION ABNORMAL [None]
